FAERS Safety Report 11821045 (Version 1)
Quarter: 2015Q4

REPORT INFORMATION
  Report Type: Spontaneous
  Country: US (occurrence: None)
  Receive Date: 20151209
  Receipt Date: 20151209
  Transmission Date: 20160305
  Serious: Yes (Life-Threatening, Hospitalization)
  Sender: FDA-Public Use
  Company Number: None

PATIENT
  Age: 56 Year
  Sex: Male
  Weight: 79.38 kg

DRUGS (1)
  1. HUMIRA [Suspect]
     Active Substance: ADALIMUMAB
     Indication: PSORIATIC ARTHROPATHY
     Dosage: 6 YEARS (?) STOMACH INJECTION?1 SHOT EVERY TWO WEEKS

REACTIONS (2)
  - Renal cell carcinoma [None]
  - Spindle cell sarcoma [None]

NARRATIVE: CASE EVENT DATE: 20150822
